FAERS Safety Report 19403676 (Version 1)
Quarter: 2021Q2

REPORT INFORMATION
  Report Type: Spontaneous
  Country: IR (occurrence: IR)
  Receive Date: 20210611
  Receipt Date: 20210611
  Transmission Date: 20210717
  Serious: Yes (Other)
  Sender: FDA-Public Use
  Company Number: IR-SA-2021SA187467

PATIENT
  Age: 34 Year
  Sex: Male
  Weight: 95 kg

DRUGS (4)
  1. OMNIC [Suspect]
     Active Substance: TAMSULOSIN HYDROCHLORIDE
     Indication: URINARY TRACT INFECTION
     Dosage: 0.4 MG, ONCE DAILY; EXP.DT. 31?DEC?2023
     Route: 048
     Dates: start: 20210522, end: 20210523
  2. OMNIC [Suspect]
     Active Substance: TAMSULOSIN HYDROCHLORIDE
     Dosage: 0.4 MG, ONCE DAILY; EXP DT: 31?DEC?2023
     Route: 048
     Dates: start: 20210526, end: 20210528
  3. CIPROFLOXACIN. [Concomitant]
     Active Substance: CIPROFLOXACIN
     Dosage: UNK
     Dates: start: 20210522, end: 20210523
  4. CELECOXIB. [Concomitant]
     Active Substance: CELECOXIB
     Dosage: UNK
     Dates: start: 20210522, end: 20210523

REACTIONS (7)
  - Ear congestion [Not Recovered/Not Resolved]
  - Dysphonia [Not Recovered/Not Resolved]
  - Swelling face [Not Recovered/Not Resolved]
  - Product use in unapproved indication [Unknown]
  - Nasal congestion [Not Recovered/Not Resolved]
  - Swollen tongue [Not Recovered/Not Resolved]
  - Lip swelling [Not Recovered/Not Resolved]

NARRATIVE: CASE EVENT DATE: 20210522
